FAERS Safety Report 8106647-3 (Version None)
Quarter: 2012Q1

REPORT INFORMATION
  Report Type: 
  Country: None (occurrence: None)
  Receive Date: 20120202
  Receipt Date: 20120125
  Transmission Date: 20120608
  Serious: Yes (Hospitalization)
  Sender: FDA-Public Use
  Company Number: US-BAYER-2012-009403

PATIENT
  Age: 29 Year
  Sex: Female

DRUGS (2)
  1. YAZ [Suspect]
  2. YASMIN [Suspect]
     Dosage: UNK
     Dates: start: 20040420, end: 20100714

REACTIONS (2)
  - PULMONARY EMBOLISM [None]
  - DEEP VEIN THROMBOSIS [None]
